FAERS Safety Report 18114508 (Version 2)
Quarter: 2020Q3

REPORT INFORMATION
  Report Type: Report from Study
  Country: CN (occurrence: CN)
  Receive Date: 20200805
  Receipt Date: 20200813
  Transmission Date: 20201103
  Serious: Yes (Other)
  Sender: FDA-Public Use
  Company Number: CN-PFIZER INC-2020293153

PATIENT

DRUGS (2)
  1. FLUCYTOSINE. [Concomitant]
     Active Substance: FLUCYTOSINE
     Indication: CRYPTOCOCCOSIS
     Dosage: UNK
  2. FLUCONAZOLE. [Suspect]
     Active Substance: FLUCONAZOLE
     Indication: CRYPTOCOCCOSIS
     Dosage: UNK

REACTIONS (1)
  - Renal impairment [Unknown]
